FAERS Safety Report 17829707 (Version 2)
Quarter: 2020Q2

REPORT INFORMATION
  Report Type: Spontaneous
  Country: US (occurrence: US)
  Receive Date: 20200527
  Receipt Date: 20200605
  Transmission Date: 20200714
  Serious: Yes (Other)
  Sender: FDA-Public Use
  Company Number: US-HORIZON-DUE-0162-2020

PATIENT
  Age: 31 Year
  Sex: Female

DRUGS (5)
  1. SYNTHROID [Concomitant]
     Active Substance: LEVOTHYROXINE SODIUM
  2. VITAMIN B12 [Concomitant]
     Active Substance: CYANOCOBALAMIN
  3. WELLBUTRIN [Concomitant]
     Active Substance: BUPROPION HYDROCHLORIDE
  4. TOPIRAMATE. [Concomitant]
     Active Substance: TOPIRAMATE
  5. DUEXIS [Suspect]
     Active Substance: FAMOTIDINE\IBUPROFEN
     Indication: LIGAMENT RUPTURE
     Dosage: ONCE A DAY
     Dates: start: 20180723

REACTIONS (4)
  - Off label use [Not Recovered/Not Resolved]
  - Ankle arthroplasty [Unknown]
  - Intentional product use issue [Unknown]
  - Foot operation [Unknown]

NARRATIVE: CASE EVENT DATE: 20180907
